FAERS Safety Report 7012351-5 (Version None)
Quarter: 2010Q3

REPORT INFORMATION
  Report Type: 
  Country: None (occurrence: None)
  Receive Date: 20100924
  Receipt Date: 20100917
  Transmission Date: 20110219
  Serious: Yes (Other)
  Sender: FDA-Public Use
  Company Number: PHHY2010CA62233

PATIENT
  Sex: Female

DRUGS (1)
  1. EXELON [Suspect]
     Dosage: UNK
     Route: 062
     Dates: start: 20090828, end: 20100625

REACTIONS (2)
  - CEREBROVASCULAR ACCIDENT [None]
  - DELIRIUM [None]
